FAERS Safety Report 6727796-8 (Version None)
Quarter: 2010Q2

REPORT INFORMATION
  Report Type: 
  Country: None (occurrence: None)
  Receive Date: 20100517
  Receipt Date: 20100505
  Transmission Date: 20101027
  Serious: Yes (Hospitalization)
  Sender: FDA-Public Use
  Company Number: US-ROCHE-702752

PATIENT
  Age: 65 Year
  Sex: Female

DRUGS (11)
  1. BEVACIZUMAB [Suspect]
     Indication: OVARIAN CANCER
     Dosage: CYCLE 2.
     Route: 042
     Dates: start: 20100423, end: 20100423
  2. PEMETREXED [Suspect]
     Indication: OVARIAN CANCER
     Dosage: CYCLE 2.
     Route: 042
     Dates: start: 20100423, end: 20100423
  3. DYAZIDE [Concomitant]
     Route: 048
  4. ENALAPRIL [Concomitant]
     Route: 048
  5. POTASSIUM CHLORIDE [Concomitant]
     Route: 048
  6. METFORMIN HYDROCHLORIDE [Concomitant]
  7. METOPROLOL TARTRATE [Concomitant]
     Dosage: FREQUENCY: QHS.
  8. MG OXIDE [Concomitant]
  9. LIPITOR [Concomitant]
     Dosage: FREQUENCY: QHS.
  10. ZYRTEC [Concomitant]
  11. AMBIEN [Concomitant]
     Dosage: FREQUENCY: QHS.

REACTIONS (5)
  - ABDOMINAL PAIN [None]
  - HAEMOGLOBIN [None]
  - NEUTROPHIL COUNT [None]
  - VOMITING [None]
  - WHITE BLOOD CELL COUNT [None]
